FAERS Safety Report 21734519 (Version 8)
Quarter: 2025Q3

REPORT INFORMATION
  Report Type: Spontaneous
  Country: US (occurrence: US)
  Receive Date: 20221215
  Receipt Date: 20250805
  Transmission Date: 20251021
  Serious: Yes (Hospitalization, Other)
  Sender: PFIZER
  Company Number: US-PFIZER INC-PV202200122806

PATIENT
  Age: 72 Year
  Sex: Female

DRUGS (2)
  1. IBRANCE [Suspect]
     Active Substance: PALBOCICLIB
     Indication: Breast cancer female
     Dates: start: 2020, end: 202303
  2. FULVESTRANT [Suspect]
     Active Substance: FULVESTRANT

REACTIONS (15)
  - Dyspnoea [Not Recovered/Not Resolved]
  - Metastases to neck [Unknown]
  - Malignant neoplasm progression [Unknown]
  - Tracheomalacia [Unknown]
  - Dry eye [Unknown]
  - White blood cell count decreased [Unknown]
  - Upper respiratory tract infection [Recovering/Resolving]
  - COVID-19 [Recovering/Resolving]
  - Gingival bleeding [Unknown]
  - Asthenia [Unknown]
  - Fatigue [Unknown]
  - Hypersomnia [Unknown]
  - Vomiting [Unknown]
  - Cardiac disorder [Unknown]
  - Product dose omission in error [Unknown]

NARRATIVE: CASE EVENT DATE: 20200101
